FAERS Safety Report 17274787 (Version 1)
Quarter: 2020Q1

REPORT INFORMATION
  Report Type: Report from Study
  Country: US (occurrence: US)
  Receive Date: 20200115
  Receipt Date: 20200115
  Transmission Date: 20200409
  Serious: Yes (Other)
  Sender: FDA-Public Use
  Company Number: US-BEH-2020111791

PATIENT
  Age: 35 Year
  Sex: Male
  Weight: 120.18 kg

DRUGS (2)
  1. HAEGARDA [Suspect]
     Active Substance: HUMAN C1-ESTERASE INHIBITOR
     Indication: PROPHYLAXIS
     Dosage: UNK UNK, TOT
     Route: 058
     Dates: start: 20200108, end: 20200108
  2. HAEGARDA [Suspect]
     Active Substance: HUMAN C1-ESTERASE INHIBITOR
     Indication: HEREDITARY ANGIOEDEMA
     Dosage: 5000 10000, THREE TO FOUR DAYS
     Route: 058
     Dates: start: 20180309

REACTIONS (2)
  - Hereditary angioedema [Unknown]
  - Product dose omission [Unknown]

NARRATIVE: CASE EVENT DATE: 20200113
